FAERS Safety Report 4387950-X (Version None)
Quarter: 2004Q2

REPORT INFORMATION
  Report Type: 
  Country: None (occurrence: None)
  Receive Date: 20040630
  Receipt Date: 20030929
  Transmission Date: 20050107
  Serious: Yes (Disabling, Other)
  Sender: FDA-Public Use
  Company Number: US-MERCK-0310USA00073

PATIENT
  Age: 20 Year
  Sex: Male
  Weight: 95 kg

DRUGS (3)
  1. CELEBREX [Concomitant]
     Route: 065
  2. VIOXX [Suspect]
     Indication: ARTHRALGIA
     Route: 048
     Dates: start: 20020101, end: 20020101
  3. VIOXX [Suspect]
     Indication: ARTHRITIS
     Route: 048
     Dates: start: 20020101, end: 20020101

REACTIONS (5)
  - ARTHROPATHY [None]
  - CONVULSION [None]
  - EMOTIONAL DISTRESS [None]
  - HEADACHE [None]
  - INTRACRANIAL ANEURYSM [None]
